FAERS Safety Report 4358240-6 (Version None)
Quarter: 2004Q2

REPORT INFORMATION
  Report Type: 
  Country: None (occurrence: None)
  Receive Date: 20040511
  Receipt Date: 20040430
  Transmission Date: 20050107
  Serious: Yes (Hospitalization)
  Sender: FDA-Public Use
  Company Number: 2004019823

PATIENT
  Age: 72 Year
  Sex: Male

DRUGS (4)
  1. NORVASC [Suspect]
     Indication: HYPERTENSION
     Dosage: 5 MG DAILY, ORAL
     Route: 048
     Dates: start: 19970602
  2. SARPOGRELATE HYDROCHLORIDE (SARPOGRELATE HYDROCHLORIDE) [Concomitant]
  3. MECOBALAMIN (MECOBALAMIN) [Concomitant]
  4. CIMETIDINE [Concomitant]

REACTIONS (2)
  - ARTERIAL OCCLUSIVE DISEASE [None]
  - DRY MOUTH [None]
